FAERS Safety Report 25596978 (Version 3)
Quarter: 2025Q4

REPORT INFORMATION
  Report Type: Spontaneous
  Country: US (occurrence: US)
  Receive Date: 20250723
  Receipt Date: 20251120
  Transmission Date: 20260118
  Serious: No
  Sender: ROCHE
  Company Number: US-ROCHE-10000343790

PATIENT
  Sex: Female

DRUGS (7)
  1. XOLAIR PFS [Suspect]
     Active Substance: OMALIZUMAB
     Indication: Migraine with aura
     Dosage: 150 MG/ML
     Route: 058
     Dates: start: 202108
  2. XOLAIR PFS [Suspect]
     Active Substance: OMALIZUMAB
     Indication: Idiopathic urticaria
  3. GRANISETRON HYDROCHLORIDE [Concomitant]
     Active Substance: GRANISETRON HYDROCHLORIDE
  4. LEUCOVORIN CALCIUM SDV [Concomitant]
  5. BERINERT KIT [Concomitant]
  6. CINRYZE SDV [Concomitant]
  7. Carnitor SDV [Concomitant]

REACTIONS (3)
  - Swelling face [Unknown]
  - Abdominal distension [Unknown]
  - Off label use [Unknown]
